FAERS Safety Report 5721534-3 (Version None)
Quarter: 2008Q2

REPORT INFORMATION
  Report Type: 
  Country: None (occurrence: None)
  Receive Date: 20080429
  Receipt Date: 20070215
  Transmission Date: 20081010
  Serious: No
  Sender: FDA-Public Use
  Company Number: US-ASTRAZENECA-2007UW02921

PATIENT
  Age: 63 Year
  Sex: Female

DRUGS (6)
  1. NEXIUM [Suspect]
     Route: 048
  2. GLUCOPHAGE [Concomitant]
  3. MICRONASE [Concomitant]
  4. METOPROLOL TARTRATE [Concomitant]
  5. JANUVIA [Concomitant]
     Indication: DIABETES MELLITUS
     Route: 048
     Dates: start: 20070109
  6. ACTOS [Concomitant]

REACTIONS (1)
  - EYE SWELLING [None]
